FAERS Safety Report 9099572 (Version 2)
Quarter: 2013Q1

REPORT INFORMATION
  Report Type: Spontaneous
  Country: IL (occurrence: IL)
  Receive Date: 20130214
  Receipt Date: 20130306
  Transmission Date: 20140127
  Serious: Yes (Other)
  Sender: FDA-Public Use
  Company Number: PHHY2013IL014153

PATIENT
  Sex: Female

DRUGS (4)
  1. ACLASTA [Suspect]
     Indication: OSTEOPOROSIS
     Dosage: 5 MG/100ML
     Route: 042
  2. ACLASTA [Suspect]
     Dosage: 5 MG/100ML
     Route: 042
  3. ACLASTA [Suspect]
     Dosage: 5 MG/100ML
     Route: 042
  4. ACLASTA [Suspect]
     Dosage: 5 MG/100ML
     Route: 042

REACTIONS (2)
  - Multiple fractures [Unknown]
  - Drug ineffective [Unknown]
